FAERS Safety Report 11070142 (Version 8)
Quarter: 2015Q4

REPORT INFORMATION
  Report Type: Spontaneous
  Country: US (occurrence: US)
  Receive Date: 20150427
  Receipt Date: 20151007
  Transmission Date: 20160304
  Serious: Yes (Hospitalization, Other)
  Sender: FDA-Public Use
  Company Number: US-PFIZER INC-2015143120

PATIENT
  Age: 63 Year
  Sex: Female
  Weight: 95 kg

DRUGS (23)
  1. XANAX [Suspect]
     Active Substance: ALPRAZOLAM
     Indication: MULTIPLE SCLEROSIS
     Dosage: 1 MG, 3X/DAY
     Route: 048
     Dates: start: 2012
  2. TOPROL TARTRATE [Concomitant]
     Active Substance: METOPROLOL TARTRATE
     Dosage: 25 MG, 2X/DAY
  3. LOSARTAN. [Concomitant]
     Active Substance: LOSARTAN
     Indication: BLOOD PRESSURE ABNORMAL
     Dosage: 25 MG, 1X/DAY
     Route: 048
  4. ZANTAC [Concomitant]
     Active Substance: RANITIDINE HYDROCHLORIDE
     Indication: ABDOMINAL DISCOMFORT
     Dosage: UNK, 2-3 TIMES A DAY
  5. XANAX [Suspect]
     Active Substance: ALPRAZOLAM
     Indication: NERVOUS SYSTEM DISORDER
     Dosage: 0.5 MG, 3X/DAY
     Route: 048
  6. XANAX [Suspect]
     Active Substance: ALPRAZOLAM
     Indication: ANXIETY
     Dosage: 1 MG, UNK
     Route: 048
  7. VICODIN [Suspect]
     Active Substance: ACETAMINOPHEN\HYDROCODONE BITARTRATE
     Dosage: 5 MG, 2X/DAY (1 TABLET,2 IN 1 DI)
     Route: 048
  8. VICODIN [Suspect]
     Active Substance: ACETAMINOPHEN\HYDROCODONE BITARTRATE
     Dosage: UNK, 4X/DAY (HYDROCODONE BITARTRATE (10 MG) PARACETAMOL (325 MG))
     Route: 048
  9. HYDROCODONE BITARTRATE AND ACETAMINOPHEN [Suspect]
     Active Substance: ACETAMINOPHEN\HYDROCODONE BITARTRATE
     Indication: EFFUSION
     Dosage: 10 MG, 4X/DAY
     Dates: start: 2000
  10. HYDROCODONE [Concomitant]
     Active Substance: HYDROCODONE
     Dosage: UNK
  11. XANAX [Suspect]
     Active Substance: ALPRAZOLAM
     Indication: NERVOUS SYSTEM DISORDER
     Dosage: 1 MG, UNK
     Route: 048
  12. CLONIDINE. [Concomitant]
     Active Substance: CLONIDINE
     Indication: BLOOD PRESSURE ABNORMAL
     Dosage: 1 MG, AS NEEDED
  13. METOPROLOL TARTRATE. [Concomitant]
     Active Substance: METOPROLOL TARTRATE
     Dosage: 0.1 MG, 2X/DAY
  14. LOSARTAN. [Concomitant]
     Active Substance: LOSARTAN
     Dosage: 25 MG, 2X/DAY
     Route: 048
  15. DECADRON [Concomitant]
     Active Substance: DEXAMETHASONE
     Dosage: UNK, 2X/DAY
  16. MYLANTA [Concomitant]
     Active Substance: ALUMINUM HYDROXIDE\DIMETHICONE\MAGNESIUM HYDROXIDE
     Dosage: UNK
  17. MAALOX ANTACID [Concomitant]
     Active Substance: ALUMINUM HYDROXIDE\DIMETHICONE\MAGNESIUM HYDROXIDE
     Dosage: UNK
  18. KLONOPIN [Concomitant]
     Active Substance: CLONAZEPAM
     Indication: ANXIETY
     Dosage: UNK
  19. VICODIN [Suspect]
     Active Substance: ACETAMINOPHEN\HYDROCODONE BITARTRATE
     Indication: BACK DISORDER
     Dosage: 5 MG, 1X/DAY
     Route: 048
  20. CLONIDINE. [Concomitant]
     Active Substance: CLONIDINE
     Indication: BLOOD PRESSURE INCREASED
     Dosage: 0.1 MG, UNK
  21. XANAX [Suspect]
     Active Substance: ALPRAZOLAM
     Indication: VESTIBULAR DISORDER
     Dosage: 0.25 MG, UNK
     Route: 048
     Dates: start: 1984
  22. VICODIN [Suspect]
     Active Substance: ACETAMINOPHEN\HYDROCODONE BITARTRATE
     Indication: SPINAL FUSION SURGERY
     Dosage: 10 MG, 4X/DAY
     Route: 048
  23. BUFFERIN (ASPIRIN) [Concomitant]
     Dosage: UNK

REACTIONS (65)
  - Fall [Unknown]
  - Drug ineffective [Not Recovered/Not Resolved]
  - Nausea [Unknown]
  - Irritability [Unknown]
  - Speech disorder [Unknown]
  - Dyspnoea [Unknown]
  - Anxiety [Unknown]
  - Bone disorder [Unknown]
  - Crying [Unknown]
  - Abasia [Unknown]
  - Dysphagia [Not Recovered/Not Resolved]
  - Therapeutic response unexpected [Unknown]
  - Alopecia [Unknown]
  - Pain [Unknown]
  - Dizziness [Unknown]
  - Drug withdrawal syndrome [Unknown]
  - Balance disorder [Unknown]
  - Nervous system disorder [Unknown]
  - Nightmare [Unknown]
  - Atrophy [Unknown]
  - Fatigue [Unknown]
  - Atrial fibrillation [Unknown]
  - Hypertension [Unknown]
  - Deep vein thrombosis [Unknown]
  - Aspiration [Unknown]
  - Drug dependence [Unknown]
  - Cardiac disorder [Unknown]
  - Nervousness [Unknown]
  - Accident at work [Unknown]
  - Condition aggravated [Unknown]
  - Fracture [Unknown]
  - Brain neoplasm [Unknown]
  - Oral disorder [Unknown]
  - Coordination abnormal [Unknown]
  - Malabsorption [Unknown]
  - Anger [Unknown]
  - Dehydration [Unknown]
  - Product use issue [Unknown]
  - Left ventricular hypertrophy [Unknown]
  - Insomnia [Not Recovered/Not Resolved]
  - Dysstasia [Unknown]
  - Hyperventilation [Unknown]
  - Impaired driving ability [Unknown]
  - Syncope [Unknown]
  - Neoplasm [Unknown]
  - Heart rate abnormal [Unknown]
  - Tremor [Unknown]
  - Impaired work ability [Unknown]
  - Vomiting projectile [Unknown]
  - Feeling abnormal [Unknown]
  - Asthenia [Unknown]
  - Myocardial infarction [Unknown]
  - Product physical issue [Not Recovered/Not Resolved]
  - Skin exfoliation [Unknown]
  - Diarrhoea [Unknown]
  - Fear [Unknown]
  - Renal disorder [Unknown]
  - Breast mass [Unknown]
  - Haemorrhage [Unknown]
  - Weight increased [Unknown]
  - Body height decreased [Unknown]
  - Pre-existing condition improved [Unknown]
  - Vomiting [Unknown]
  - Blood disorder [Unknown]
  - Dysarthria [Unknown]

NARRATIVE: CASE EVENT DATE: 201212
